FAERS Safety Report 5961886-2 (Version None)
Quarter: 2008Q4

REPORT INFORMATION
  Report Type: 
  Country: None (occurrence: None)
  Receive Date: 20081121
  Receipt Date: 20080910
  Transmission Date: 20090506
  Serious: No
  Sender: FDA-Public Use
  Company Number: US-BRISTOL-MYERS SQUIBB COMPANY-14335301

PATIENT
  Age: 60 Year
  Sex: Male

DRUGS (2)
  1. AVALIDE [Suspect]
     Dosage: 1 DOSAGEFORM = 300/25 (UNITS NOT GIVEN) FOR THE PAST 6-8 MONTHS
  2. ASPIRIN [Concomitant]

REACTIONS (1)
  - ERECTILE DYSFUNCTION [None]
